FAERS Safety Report 11056704 (Version 3)
Quarter: 2015Q4

REPORT INFORMATION
  Report Type: Spontaneous
  Country: US (occurrence: US)
  Receive Date: 20150422
  Receipt Date: 20151008
  Transmission Date: 20160304
  Serious: No
  Sender: FDA-Public Use
  Company Number: US-JNJFOC-20150313724

PATIENT
  Age: 65 Year
  Sex: Female
  Weight: 106.6 kg

DRUGS (7)
  1. ATORVASTATIN [Concomitant]
     Active Substance: ATORVASTATIN
     Indication: BLOOD CHOLESTEROL ABNORMAL
     Route: 048
  2. LANTUS [Concomitant]
     Active Substance: INSULIN GLARGINE
     Indication: TYPE 2 DIABETES MELLITUS
     Route: 065
  3. QUAZEPAM. [Concomitant]
     Active Substance: QUAZEPAM
     Indication: PSYCHOGENIC SEIZURE
     Route: 048
  4. BACLOFEN. [Concomitant]
     Active Substance: BACLOFEN
     Indication: MUSCLE RELAXANT THERAPY
     Route: 048
     Dates: start: 201501
  5. METOPROLOL [Concomitant]
     Active Substance: METOPROLOL
     Indication: HYPERTENSION
     Route: 048
  6. INVOKANA [Suspect]
     Active Substance: CANAGLIFLOZIN
     Indication: TYPE 2 DIABETES MELLITUS
     Route: 048
     Dates: start: 20140819
  7. METOPROLOL [Concomitant]
     Active Substance: METOPROLOL
     Indication: HEART RATE INCREASED
     Route: 048

REACTIONS (4)
  - Eating disorder [Not Recovered/Not Resolved]
  - Adverse drug reaction [Unknown]
  - Nausea [Recovered/Resolved]
  - Product odour abnormal [Recovered/Resolved]

NARRATIVE: CASE EVENT DATE: 201410
